FAERS Safety Report 4426096-9 (Version None)
Quarter: 2004Q3

REPORT INFORMATION
  Report Type: 
  Country: None (occurrence: None)
  Receive Date: 20040811
  Receipt Date: 20040729
  Transmission Date: 20050211
  Serious: Yes (Hospitalization, Other)
  Sender: FDA-Public Use
  Company Number: HQWYE639911SEP03

PATIENT
  Age: 45 Year
  Sex: Female

DRUGS (4)
  1. ADVIL [Suspect]
     Indication: MYALGIA
     Dosage: 400 MG 1X PER 1 DAY ORAL
     Route: 048
     Dates: start: 20030721, end: 20030816
  2. NARAMIG (NARATRIPTAN HYDROCHLORIDE,) [Suspect]
     Indication: MIGRAINE
     Dosage: 5 MG 1X PER 1 DAY ORAL
     Route: 048
     Dates: end: 20030816
  3. REVAXIS (DIPHTHERIA TOXOID/TETANUS TOXOID/POLIOMYELITIS VACCINE INACTI [Suspect]
     Indication: IMMUNISATION
     Dosage: ^ONE DOSE FORM^ IM
     Route: 030
     Dates: start: 20030720, end: 20030720
  4. MELODIA (GESTODENE/ETHINYL ESTRADIOL) [Concomitant]

REACTIONS (17)
  - ALANINE AMINOTRANSFERASE INCREASED [None]
  - ASPARTATE AMINOTRANSFERASE INCREASED [None]
  - ASTHENIA [None]
  - BLOOD ALKALINE PHOSPHATASE INCREASED [None]
  - BLOOD BILIRUBIN INCREASED [None]
  - BLOOD IMMUNOGLOBULIN M INCREASED [None]
  - BLOOD LACTATE DEHYDROGENASE INCREASED [None]
  - C-REACTIVE PROTEIN INCREASED [None]
  - CYTOMEGALOVIRUS ANTIBODY POSITIVE [None]
  - EPSTEIN-BARR VIRUS ANTIBODY POSITIVE [None]
  - FOOD POISONING [None]
  - GAMMA-GLUTAMYLTRANSFERASE INCREASED [None]
  - HEPATIC ENZYME INCREASED [None]
  - HEPATOMEGALY [None]
  - LIVER FUNCTION TEST ABNORMAL [None]
  - NAUSEA [None]
  - PYREXIA [None]
